FAERS Safety Report 7249079-2 (Version None)
Quarter: 2011Q1

REPORT INFORMATION
  Report Type: 
  Country: None (occurrence: None)
  Receive Date: 20110128
  Receipt Date: 20100908
  Transmission Date: 20110831
  Serious: Yes (Hospitalization, Other)
  Sender: FDA-Public Use
  Company Number: US-BAYER-201029470NA

PATIENT
  Sex: Female
  Weight: 49.887 kg

DRUGS (14)
  1. YAZ [Suspect]
     Indication: ACNE
  2. YAZ [Suspect]
     Indication: PREMENSTRUAL SYNDROME
  3. GENERAL ANESTHESIA [Concomitant]
     Dosage: UNK
     Dates: start: 20090616, end: 20090616
  4. GENERAL ANESTHESIA [Concomitant]
     Dosage: UNK
     Dates: start: 20100310, end: 20100310
  5. UNCODEABLE ^UNCLASSIFIABLE^ [Concomitant]
     Dosage: UNK
     Dates: start: 20080101
  6. UNCODEABLE ^UNCLASSIFIABLE^ [Concomitant]
     Dosage: UNK
     Dates: start: 20080101
  7. YASMIN [Suspect]
     Indication: PREMENSTRUAL SYNDROME
  8. ROBAXIN [Concomitant]
     Dosage: UNK
     Dates: start: 20080101
  9. OCELLA [Suspect]
     Indication: ACNE
     Dosage: UNK
     Dates: start: 20081001, end: 20081201
  10. LORTAB [Concomitant]
  11. YASMIN [Suspect]
     Indication: ACNE
     Dosage: UNK
     Dates: end: 20081201
  12. GENERAL ANESTHESIA [Concomitant]
     Dosage: UNK
     Dates: start: 20100203, end: 20100203
  13. IBUPROFEN [Concomitant]
  14. OCELLA [Suspect]
     Indication: PREMENSTRUAL SYNDROME

REACTIONS (15)
  - INJURY [None]
  - HEADACHE [None]
  - VOMITING [None]
  - ABDOMINAL PAIN [None]
  - PELVIC PAIN [None]
  - ADENOMYOSIS [None]
  - ABDOMINAL PAIN LOWER [None]
  - HAEMORRHAGE [None]
  - ABDOMINAL PAIN UPPER [None]
  - CHOLECYSTITIS CHRONIC [None]
  - NAUSEA [None]
  - CHOLELITHIASIS [None]
  - DYSPAREUNIA [None]
  - FAT INTOLERANCE [None]
  - DYSMENORRHOEA [None]
